FAERS Safety Report 24345792 (Version 1)
Quarter: 2024Q3

REPORT INFORMATION
  Report Type: Spontaneous
  Country: US (occurrence: US)
  Receive Date: 20240920
  Receipt Date: 20240920
  Transmission Date: 20241016
  Serious: Yes (Other)
  Sender: VIVUS
  Company Number: US-PPDUS-2023V1001188

PATIENT
  Age: 41 Year
  Sex: Female
  Weight: 56.75 kg

DRUGS (3)
  1. QSYMIA [Suspect]
     Active Substance: PHENTERMINE HYDROCHLORIDE\TOPIRAMATE
     Indication: Weight decreased
     Route: 048
  2. QSYMIA [Suspect]
     Active Substance: PHENTERMINE HYDROCHLORIDE\TOPIRAMATE
     Indication: Weight decreased
     Route: 048
  3. LINZESS [Concomitant]
     Active Substance: LINACLOTIDE
     Indication: Inflammatory bowel disease
     Route: 065

REACTIONS (10)
  - Suicidal ideation [Unknown]
  - Delusion [Unknown]
  - Aggression [Unknown]
  - Affective disorder [Unknown]
  - Agitation [Unknown]
  - Hypoacusis [Unknown]
  - Tinnitus [Unknown]
  - Blood pressure systolic increased [Unknown]
  - Chest pain [Unknown]
  - Insomnia [Unknown]

NARRATIVE: CASE EVENT DATE: 20230101
